FAERS Safety Report 11164747 (Version 1)
Quarter: 2015Q2

REPORT INFORMATION
  Report Type: Spontaneous
  Country: TR (occurrence: TR)
  Receive Date: 20150604
  Receipt Date: 20150604
  Transmission Date: 20150821
  Serious: Yes (Other)
  Sender: FDA-Public Use
  Company Number: TR-CELGENE-TUR-2015056006

PATIENT

DRUGS (3)
  1. ALL-TRANS RETINOIC ASIT [Concomitant]
     Indication: ACUTE MYELOID LEUKAEMIA
     Route: 065
  2. AZACITIDINE INJECTABLE [Suspect]
     Active Substance: AZACITIDINE
     Indication: ACUTE MYELOID LEUKAEMIA
     Dosage: 75 MILLIGRAM/SQ. METER
     Route: 065
  3. VALPROIC ACID. [Concomitant]
     Active Substance: VALPROIC ACID
     Indication: ACUTE MYELOID LEUKAEMIA
     Dosage: 35-50MG/KG
     Route: 048

REACTIONS (6)
  - Febrile neutropenia [Unknown]
  - Haematuria [Unknown]
  - Neutropenia [Unknown]
  - Cardiovascular disorder [Unknown]
  - Thrombocytopenia [Unknown]
  - Gastrointestinal haemorrhage [Unknown]
